FAERS Safety Report 8738971 (Version 3)
Quarter: 2012Q4

REPORT INFORMATION
  Report Type: Report from Study
  Country: TW (occurrence: TW)
  Receive Date: 20120823
  Receipt Date: 20120910
  Transmission Date: 20130627
  Serious: Yes (Death, Hospitalization, Other)
  Sender: FDA-Public Use
  Company Number: PHHY2012TW071069

PATIENT
  Age: 50 Year
  Sex: Female

DRUGS (10)
  1. AMN107 [Suspect]
     Indication: CHRONIC MYELOID LEUKAEMIA
     Dosage: 800 mg/day
     Route: 048
     Dates: start: 20111015, end: 20120717
  2. DASATINIB [Suspect]
     Dosage: 100 mg, daily
     Dates: start: 20120731, end: 20120803
  3. DOMPERIDONE [Concomitant]
     Indication: VOMITING
     Dosage: 10 mg, UNK
     Dates: start: 20120804
  4. ACETAMINOPHEN [Concomitant]
     Indication: PYREXIA
     Dosage: 500 mg, UNK
     Dates: start: 20120804
  5. VALPROATE SODIUM [Concomitant]
     Indication: EPILEPSY
     Dosage: 800 mg, UNK
     Dates: start: 20120804
  6. FLUCONAZOLE [Concomitant]
     Indication: INFECTION
     Dosage: 400 mg, UNK
     Dates: start: 20120804
  7. MANNITOL [Concomitant]
     Indication: INTRACRANIAL PRESSURE INCREASED
     Dosage: 20 %/ 100 ml
     Dates: start: 20120804
  8. CEFEPIME [Concomitant]
     Indication: INFECTION
     Dosage: 6 g, UNK
     Dates: start: 20120804
  9. METOCLOPRAMIDE [Concomitant]
     Indication: VOMITING
     Dosage: 5 mg, UNK
     Dates: start: 20120804
  10. ULTRACET [Concomitant]
     Indication: HEADACHE
     Dates: start: 20120804

REACTIONS (22)
  - Pancytopenia [Unknown]
  - Pneumonia [Not Recovered/Not Resolved]
  - Neutropenia [Not Recovered/Not Resolved]
  - Febrile neutropenia [Not Recovered/Not Resolved]
  - Sepsis [Not Recovered/Not Resolved]
  - Stomatitis [Not Recovered/Not Resolved]
  - Thrombocytopenia [Not Recovered/Not Resolved]
  - Headache [Not Recovered/Not Resolved]
  - Nausea [Not Recovered/Not Resolved]
  - Vomiting [Not Recovered/Not Resolved]
  - Subarachnoid haemorrhage [Not Recovered/Not Resolved]
  - Brain oedema [Not Recovered/Not Resolved]
  - Hydrocephalus [Not Recovered/Not Resolved]
  - Depressed level of consciousness [Not Recovered/Not Resolved]
  - Death [Fatal]
  - Pain in extremity [Not Recovered/Not Resolved]
  - Deafness bilateral [Not Recovered/Not Resolved]
  - Herpes virus infection [Not Recovered/Not Resolved]
  - Haemorrhage intracranial [Not Recovered/Not Resolved]
  - Subdural haematoma [Not Recovered/Not Resolved]
  - Intracranial pressure increased [Not Recovered/Not Resolved]
  - Haemoglobin decreased [Unknown]
